FAERS Safety Report 9821987 (Version 1)
Quarter: 2014Q1

REPORT INFORMATION
  Report Type: Spontaneous
  Country: BR (occurrence: BR)
  Receive Date: 20140116
  Receipt Date: 20140116
  Transmission Date: 20141002
  Serious: Yes (Other)
  Sender: FDA-Public Use
  Company Number: BR-ASTRAZENECA-2014SE01546

PATIENT
  Sex: Female

DRUGS (3)
  1. BRILINTA [Suspect]
     Route: 048
     Dates: start: 201305
  2. 12 UNSPECIFIED CONCOMITANT DRUGS [Concomitant]
     Indication: DIABETES MELLITUS
  3. 12 UNSPECIFIED CONCOMITANT DRUGS [Concomitant]
     Indication: HYPERTENSION

REACTIONS (1)
  - Blood glucose fluctuation [Not Recovered/Not Resolved]
